FAERS Safety Report 23944062 (Version 1)
Quarter: 2024Q2

REPORT INFORMATION
  Report Type: Spontaneous
  Country: GB (occurrence: GB)
  Receive Date: 20240606
  Receipt Date: 20240606
  Transmission Date: 20240716
  Serious: Yes (Other)
  Sender: FDA-Public Use
  Company Number: GB-MHRA-TPP7426062C4071558YC1716374440275

PATIENT
  Age: 35 Year
  Sex: Female
  Weight: 59 kg

DRUGS (3)
  1. METRONIDAZOLE [Suspect]
     Active Substance: METRONIDAZOLE
     Indication: Product used for unknown indication
     Dosage: UNK
     Route: 065
  2. NORETHINDRONE [Concomitant]
     Active Substance: NORETHINDRONE
     Indication: Product used for unknown indication
     Dosage: UNK (TDS STARTING 3 DAYS BEFORE PREDICTED DATE OF PE...)
     Route: 065
     Dates: start: 20240423
  3. NORETHINDRONE [Concomitant]
     Active Substance: NORETHINDRONE
     Indication: Product used for unknown indication
     Dosage: UNK (ONE TABLET 3 TIMES DAILY STARTING 3 DAYS BEFORE...)
     Route: 065
     Dates: start: 20240419, end: 20240517

REACTIONS (2)
  - Cardiac flutter [Recovering/Resolving]
  - Malaise [Recovering/Resolving]
